FAERS Safety Report 11074949 (Version 3)
Quarter: 2015Q2

REPORT INFORMATION
  Report Type: Spontaneous
  Country: JP (occurrence: JP)
  Receive Date: 20150429
  Receipt Date: 20150601
  Transmission Date: 20150821
  Serious: Yes (Hospitalization, Other)
  Sender: FDA-Public Use
  Company Number: JP-PFIZER INC-2015139664

PATIENT
  Age: 56 Year
  Sex: Female

DRUGS (4)
  1. LOXONIN [Suspect]
     Active Substance: LOXOPROFEN SODIUM
     Indication: PAIN
     Dosage: UNK
     Route: 048
     Dates: start: 20150417, end: 20150418
  2. LYRICA [Suspect]
     Active Substance: PREGABALIN
     Indication: PAIN IN EXTREMITY
     Dosage: 25 MG, DAILY (BEFORE BEDTIME)
     Route: 048
     Dates: start: 20150416, end: 20150416
  3. MUCOSTA [Suspect]
     Active Substance: REBAMIPIDE
     Indication: PAIN
     Dosage: UNK
     Route: 048
     Dates: start: 20150417, end: 20150418
  4. LYRICA [Suspect]
     Active Substance: PREGABALIN
     Indication: HYPOAESTHESIA

REACTIONS (3)
  - Palpitations [Unknown]
  - Anaphylactic reaction [Recovering/Resolving]
  - Fatigue [Unknown]

NARRATIVE: CASE EVENT DATE: 20150417
